FAERS Safety Report 4346021-9 (Version None)
Quarter: 2004Q1

REPORT INFORMATION
  Report Type: 
  Country: None (occurrence: None)
  Receive Date: 20040325
  Receipt Date: 20040119
  Transmission Date: 20041129
  Serious: No
  Sender: FDA-Public Use
  Company Number: USA030638818

PATIENT
  Age: 78 Year
  Sex: Female
  Weight: 68 kg

DRUGS (6)
  1. FORTEO [Suspect]
     Indication: OSTEOPOROSIS
     Dosage: 20 UG/DAY
     Dates: start: 20030416
  2. FORTEO [Suspect]
     Indication: SPINAL FRACTURE
     Dosage: 20 UG/DAY
     Dates: start: 20030416
  3. LOPRESSOR [Concomitant]
  4. VITAMIN D [Concomitant]
  5. CALCIUM [Concomitant]
  6. CORDARONE [Concomitant]

REACTIONS (7)
  - ARTHRALGIA [None]
  - FEELING ABNORMAL [None]
  - HYPERTENSION [None]
  - NAUSEA [None]
  - NECK PAIN [None]
  - PAIN [None]
  - PAIN IN EXTREMITY [None]
